FAERS Safety Report 23991914 (Version 1)
Quarter: 2024Q2

REPORT INFORMATION
  Report Type: Spontaneous
  Country: US (occurrence: US)
  Receive Date: 20240620
  Receipt Date: 20240620
  Transmission Date: 20240715
  Serious: No
  Sender: FDA-Public Use
  Company Number: US-BAUSCHBL-2024BNL028703

PATIENT
  Age: 72 Year
  Sex: Female

DRUGS (1)
  1. VYZULTA [Suspect]
     Active Substance: LATANOPROSTENE BUNOD
     Indication: Intraocular pressure increased
     Dosage: COUPLE OF YEARS
     Route: 065

REACTIONS (1)
  - Burning sensation [Unknown]
